FAERS Safety Report 6913017-X (Version None)
Quarter: 2010Q3

REPORT INFORMATION
  Report Type: 
  Country: None (occurrence: None)
  Receive Date: 20100806
  Receipt Date: 20090601
  Transmission Date: 20110219
  Serious: No
  Sender: FDA-Public Use
  Company Number: US-PFIZER INC-2009176515

PATIENT
  Sex: Female

DRUGS (1)
  1. DILANTIN-125 [Suspect]
     Dosage: UNK

REACTIONS (7)
  - AGGRESSION [None]
  - ANGER [None]
  - BELLIGERENCE [None]
  - DRUG INEFFECTIVE [None]
  - HEPATOTOXICITY [None]
  - PERSONALITY CHANGE [None]
  - RASH [None]
